FAERS Safety Report 24317310 (Version 1)
Quarter: 2024Q3

REPORT INFORMATION
  Report Type: Spontaneous
  Country: GB (occurrence: GB)
  Receive Date: 20240913
  Receipt Date: 20240913
  Transmission Date: 20241017
  Serious: Yes (Other)
  Sender: SEPTODONT
  Company Number: None

PATIENT
  Age: 61 Year
  Sex: Female

DRUGS (1)
  1. EPINEPHRINE\LIDOCAINE [Suspect]
     Active Substance: EPINEPHRINE\LIDOCAINE
     Route: 065
     Dates: end: 20240204

REACTIONS (3)
  - Medication error [Unknown]
  - Hypoaesthesia [Not Recovered/Not Resolved]
  - Thermal burn [Unknown]

NARRATIVE: CASE EVENT DATE: 20240204
